FAERS Safety Report 4368974-5 (Version None)
Quarter: 2004Q2

REPORT INFORMATION
  Report Type: 
  Country: None (occurrence: None)
  Receive Date: 20040525
  Receipt Date: 20040514
  Transmission Date: 20050107
  Serious: Yes (Hospitalization, Other)
  Sender: FDA-Public Use
  Company Number: 2004032945

PATIENT
  Age: 53 Year
  Sex: Male
  Weight: 86.1834 kg

DRUGS (6)
  1. LIPITOR [Suspect]
     Indication: ILL-DEFINED DISORDER
     Dosage: 10 MG (10 MG, DAILY, INTERVAL EVERY DAY), ORAL
     Route: 048
     Dates: end: 20040501
  2. ALTACE [Suspect]
     Indication: ILL-DEFINED DISORDER
     Dosage: 2.5 MG (2.5 MG, 1 IN 1 D), ORAL
     Route: 048
     Dates: start: 20030601, end: 20040514
  3. COLESEVELAM [Concomitant]
  4. TAMSULOSIN [Concomitant]
  5. ESOMEPRAZOLE [Concomitant]
  6. ASPIRIN [Concomitant]

REACTIONS (3)
  - COUGH [None]
  - MUSCLE CRAMP [None]
  - MYOCARDIAL INFARCTION [None]
